FAERS Safety Report 7038290-1 (Version None)
Quarter: 2010Q4

REPORT INFORMATION
  Report Type: 
  Country: None (occurrence: None)
  Receive Date: 20101011
  Receipt Date: 20091014
  Transmission Date: 20110411
  Serious: No
  Sender: FDA-Public Use
  Company Number: US-PFIZER INC-2009284205

PATIENT
  Sex: Female
  Weight: 65.76 kg

DRUGS (2)
  1. NEURONTIN [Suspect]
     Indication: NEURALGIA
     Dosage: 300 MG, 3X/DAY
     Dates: start: 20090401, end: 20091001
  2. ELAVIL [Concomitant]
     Dosage: 25 MG, 3X/DAY
     Dates: start: 20090601

REACTIONS (4)
  - DRUG INEFFECTIVE [None]
  - DRUG INTOLERANCE [None]
  - DYSPHAGIA [None]
  - SEDATION [None]
